FAERS Safety Report 9305030 (Version 1)
Quarter: 2013Q2

REPORT INFORMATION
  Report Type: Spontaneous
  Country: US (occurrence: None)
  Receive Date: 20130522
  Receipt Date: 20130522
  Transmission Date: 20140414
  Serious: Yes (Hospitalization)
  Sender: FDA-Public Use
  Company Number: None

PATIENT
  Age: 61 Year
  Sex: Female

DRUGS (7)
  1. AUGMENTIN [Suspect]
     Dates: start: 20111123, end: 20111203
  2. CETIRIZINE [Concomitant]
  3. EZETIMIBE W/SIMVASTATIN [Concomitant]
  4. FUROSEMIDE [Concomitant]
  5. IBUPROFEN [Concomitant]
  6. OMEPRAZOLE [Concomitant]
  7. PARACETAMOL [Concomitant]

REACTIONS (2)
  - Drug-induced liver injury [None]
  - Adenocarcinoma pancreas [None]
